FAERS Safety Report 11790617 (Version 2)
Quarter: 2015Q4

REPORT INFORMATION
  Report Type: Spontaneous
  Country: US (occurrence: US)
  Receive Date: 20151201
  Receipt Date: 20151228
  Transmission Date: 20160305
  Serious: No
  Sender: FDA-Public Use
  Company Number: US-PFIZER INC-2015417176

PATIENT
  Age: 62 Year
  Sex: Female
  Weight: 47 kg

DRUGS (4)
  1. IMDUR [Concomitant]
     Active Substance: ISOSORBIDE MONONITRATE
     Dosage: UNK
  2. CHANTIX [Suspect]
     Active Substance: VARENICLINE TARTRATE
     Dosage: 0.5 MG, 2X/DAY (ONE HALF IN THE MORNING AND ONE HALF IN THE EVENING)
     Route: 048
     Dates: start: 2010, end: 201412
  3. PLAVIX [Concomitant]
     Active Substance: CLOPIDOGREL BISULFATE
     Indication: COAGULOPATHY
     Dosage: UNK
  4. CHANTIX [Suspect]
     Active Substance: VARENICLINE TARTRATE
     Indication: SMOKING CESSATION THERAPY
     Dosage: UNK
     Route: 048
     Dates: start: 2008

REACTIONS (6)
  - Pre-existing condition improved [Unknown]
  - Therapeutic response unexpected [Not Recovered/Not Resolved]
  - Fear [Not Recovered/Not Resolved]
  - Intentional product misuse [Not Recovered/Not Resolved]
  - Anxiety [Unknown]
  - Condition aggravated [Unknown]

NARRATIVE: CASE EVENT DATE: 2008
